FAERS Safety Report 15906342 (Version 1)
Quarter: 2019Q1

REPORT INFORMATION
  Report Type: Spontaneous
  Country: US (occurrence: US)
  Receive Date: 20190110
  Receipt Date: 20190110
  Transmission Date: 20190417
  Serious: Yes (Hospitalization)
  Sender: FDA-Public Use
  Company Number: None

PATIENT
  Age: 14 Year
  Sex: Female

DRUGS (1)
  1. SYMDEKO [Suspect]
     Active Substance: IVACAFTOR\TEZACAFTOR
     Indication: CYSTIC FIBROSIS
     Route: 048
     Dates: start: 201805

REACTIONS (3)
  - Infective pulmonary exacerbation of cystic fibrosis [None]
  - Pulmonary function test decreased [None]
  - Wheezing [None]

NARRATIVE: CASE EVENT DATE: 20190107
